FAERS Safety Report 7741467-0 (Version None)
Quarter: 2011Q3

REPORT INFORMATION
  Report Type: 
  Country: None (occurrence: None)
  Receive Date: 20110909
  Receipt Date: 20110905
  Transmission Date: 20111222
  Serious: Yes (Life-Threatening, Hospitalization)
  Sender: FDA-Public Use
  Company Number: GB-ASTRAZENECA-2011SE35511

PATIENT
  Age: 48 Year
  Sex: Female

DRUGS (10)
  1. ZOLADEX [Suspect]
     Route: 058
     Dates: start: 20110424
  2. ZOLADEX [Suspect]
     Route: 058
     Dates: start: 20110424
  3. DICYNENE [Concomitant]
  4. ZOLADEX [Suspect]
     Indication: UTERINE LEIOMYOMA
     Route: 058
     Dates: start: 20110317
  5. NORETHINDRONE [Concomitant]
  6. ZOLADEX [Suspect]
     Indication: MENINGORRHAGIA
     Route: 058
     Dates: start: 20110317
  7. ZOLADEX [Suspect]
     Route: 058
     Dates: start: 20110424
  8. ZOLADEX [Suspect]
     Indication: ANAEMIA
     Route: 058
     Dates: start: 20110317
  9. FERROUS FUMARATE [Concomitant]
     Route: 048
  10. MEFENAMIC ACID [Concomitant]

REACTIONS (4)
  - VOMITING [None]
  - SUPERIOR SAGITTAL SINUS THROMBOSIS [None]
  - HEADACHE [None]
  - PAIN [None]
